FAERS Safety Report 19849377 (Version 1)
Quarter: 2021Q3

REPORT INFORMATION
  Report Type: Report from Study
  Country: US (occurrence: US)
  Receive Date: 20210917
  Receipt Date: 20210917
  Transmission Date: 20211014
  Serious: Yes (Hospitalization, Other)
  Sender: FDA-Public Use
  Company Number: US-GILEAD-2021-0548705

PATIENT
  Age: 5 Year
  Sex: Female

DRUGS (12)
  1. PEPCID [Concomitant]
     Active Substance: FAMOTIDINE
  2. TRILEPTAL [Concomitant]
     Active Substance: OXCARBAZEPINE
  3. AZTREONAM LYSINE [Suspect]
     Active Substance: AZTREONAM LYSINE
     Indication: PSEUDOMONAS INFECTION
     Dosage: 75 MG, TID
     Route: 055
  4. LUPRON [Concomitant]
     Active Substance: LEUPROLIDE ACETATE
  5. GLYCOPYRROLATE. [Concomitant]
     Active Substance: GLYCOPYRROLATE
  6. VIGABATRIN. [Concomitant]
     Active Substance: VIGABATRIN
  7. BACLOFEN. [Concomitant]
     Active Substance: BACLOFEN
  8. VITAMIN B1 [Concomitant]
     Active Substance: THIAMINE HYDROCHLORIDE
  9. BUDESONIDE. [Concomitant]
     Active Substance: BUDESONIDE
  10. CARNITINE [Concomitant]
     Active Substance: CARNITINE
  11. NEXIUM I.V. [Concomitant]
     Active Substance: ESOMEPRAZOLE SODIUM
  12. SODIUM CITRATE. [Concomitant]
     Active Substance: SODIUM CITRATE

REACTIONS (2)
  - Off label use [Unknown]
  - COVID-19 [Recovered/Resolved]

NARRATIVE: CASE EVENT DATE: 202109
